FAERS Safety Report 21605678 (Version 1)
Quarter: 2022Q4

REPORT INFORMATION
  Report Type: Spontaneous
  Country: CN (occurrence: None)
  Receive Date: 20221116
  Receipt Date: 20221116
  Transmission Date: 20230113
  Serious: Yes (Other)
  Sender: FDA-Public Use
  Company Number: CN-ROCHE-3218464

PATIENT
  Age: 76 Year
  Sex: Male
  Weight: 75 kg

DRUGS (14)
  1. DENOSUMAB [Suspect]
     Active Substance: DENOSUMAB
     Indication: Lung neoplasm malignant
     Route: 059
     Dates: start: 20220719
  2. DENOSUMAB [Suspect]
     Active Substance: DENOSUMAB
     Indication: Colon cancer
  3. LOBAPLATIN [Suspect]
     Active Substance: LOBAPLATIN
     Indication: Lung neoplasm malignant
     Route: 041
     Dates: start: 20220719
  4. LOBAPLATIN [Suspect]
     Active Substance: LOBAPLATIN
     Indication: Colon cancer
  5. GEMCITABINE HYDROCHLORIDE [Suspect]
     Active Substance: GEMCITABINE HYDROCHLORIDE
     Indication: Lung neoplasm malignant
     Route: 041
     Dates: start: 20220719
  6. GEMCITABINE HYDROCHLORIDE [Suspect]
     Active Substance: GEMCITABINE HYDROCHLORIDE
     Indication: Colon cancer
  7. AVASTIN [Suspect]
     Active Substance: BEVACIZUMAB
     Indication: Lung neoplasm malignant
     Route: 041
     Dates: start: 20220719
  8. AVASTIN [Suspect]
     Active Substance: BEVACIZUMAB
     Indication: Colon cancer
  9. TISLELIZUMAB [Suspect]
     Active Substance: TISLELIZUMAB
     Indication: Lung neoplasm malignant
     Route: 042
     Dates: start: 20220719
  10. TISLELIZUMAB [Suspect]
     Active Substance: TISLELIZUMAB
     Indication: Colon cancer
  11. SODIUM CHLORIDE [Concomitant]
     Active Substance: SODIUM CHLORIDE
     Route: 041
     Dates: start: 20220719
  12. SODIUM CHLORIDE [Concomitant]
     Active Substance: SODIUM CHLORIDE
     Route: 041
     Dates: start: 20220719
  13. SODIUM CHLORIDE [Concomitant]
     Active Substance: SODIUM CHLORIDE
     Route: 041
     Dates: start: 20220719
  14. DEXTROSE [Concomitant]
     Active Substance: DEXTROSE
     Route: 041
     Dates: start: 20220719

REACTIONS (3)
  - White blood cell count decreased [Recovering/Resolving]
  - Neutrophil count decreased [Recovering/Resolving]
  - Hepatic function abnormal [Recovering/Resolving]

NARRATIVE: CASE EVENT DATE: 20220725
